FAERS Safety Report 5406551-5 (Version None)
Quarter: 2007Q3

REPORT INFORMATION
  Report Type: 
  Country: None (occurrence: None)
  Receive Date: 20070806
  Receipt Date: 20070725
  Transmission Date: 20080115
  Serious: No
  Sender: FDA-Public Use
  Company Number: AU-PFIZER INC-2007047203

PATIENT
  Sex: Male

DRUGS (6)
  1. SUTENT [Suspect]
     Indication: RENAL CELL CARCINOMA STAGE UNSPECIFIED
     Route: 048
  2. CLOPIDOGREL [Concomitant]
     Dosage: DAILY DOSE:75MG
  3. METOPROLOL SUCCINATE [Concomitant]
     Dosage: DAILY DOSE:25MG
     Route: 048
  4. PERINDOPRIL ERBUMINE [Concomitant]
     Dosage: DAILY DOSE:2MG
  5. ALL OTHER THERAPEUTIC PRODUCTS [Concomitant]
     Dosage: DAILY DOSE:60MG
  6. ZOTON [Concomitant]

REACTIONS (4)
  - NIGHT SWEATS [None]
  - ORAL MUCOSAL EXFOLIATION [None]
  - ORAL PAIN [None]
  - RASH MACULO-PAPULAR [None]
